FAERS Safety Report 5871490-2 (Version None)
Quarter: 2008Q3

REPORT INFORMATION
  Report Type: 
  Country: None (occurrence: None)
  Receive Date: 20080905
  Receipt Date: 20080401
  Transmission Date: 20090109
  Serious: No
  Sender: FDA-Public Use
  Company Number: A0711948A

PATIENT
  Age: 43 Year
  Sex: Female
  Weight: 108.6 kg

DRUGS (3)
  1. REQUIP [Suspect]
     Indication: RESTLESS LEGS SYNDROME
     Dosage: 2MG PER DAY
     Route: 048
     Dates: start: 20080125, end: 20080126
  2. BENICAR [Concomitant]
  3. PREMARIN [Concomitant]

REACTIONS (3)
  - NAUSEA [None]
  - SENSATION OF HEAVINESS [None]
  - VOMITING [None]
